FAERS Safety Report 19922369 (Version 6)
Quarter: 2022Q1

REPORT INFORMATION
  Report Type: Spontaneous
  Country: US (occurrence: US)
  Receive Date: 20211006
  Receipt Date: 20220313
  Transmission Date: 20220423
  Serious: Yes (Other)
  Sender: FDA-Public Use
  Company Number: US-AMGEN-USASP2021152485

PATIENT
  Age: 38 Year
  Sex: Female

DRUGS (5)
  1. AIMOVIG [Suspect]
     Active Substance: ERENUMAB-AOOE
     Indication: Migraine prophylaxis
     Dosage: 140 MILLIGRAM, QMO
     Route: 065
     Dates: start: 20210616, end: 20210916
  2. ATENOLOL [Concomitant]
     Active Substance: ATENOLOL
     Indication: Product used for unknown indication
     Route: 065
  3. ESTRADIOL [Concomitant]
     Active Substance: ESTRADIOL
     Dosage: UNK
     Route: 065
  4. SALINE [Concomitant]
     Active Substance: SODIUM CHLORIDE
     Indication: Product used for unknown indication
     Route: 065
  5. TOZINAMERAN [Concomitant]
     Active Substance: TOZINAMERAN

REACTIONS (18)
  - Adnexal torsion [Recovered/Resolved]
  - Ovarian necrosis [Recovered/Resolved]
  - Angina pectoris [Not Recovered/Not Resolved]
  - Eye haemorrhage [Unknown]
  - Bradycardia [Unknown]
  - Palpitations [Unknown]
  - Drug ineffective [Unknown]
  - Headache [Recovering/Resolving]
  - Muscle spasms [Not Recovered/Not Resolved]
  - Flank pain [Not Recovered/Not Resolved]
  - Amenorrhoea [Unknown]
  - Endocrine disorder [Unknown]
  - Thyroid disorder [Unknown]
  - Feeling abnormal [Unknown]
  - Vein disorder [Unknown]
  - Weight decreased [Unknown]
  - Hypertension [Unknown]
  - Drug interaction [Unknown]

NARRATIVE: CASE EVENT DATE: 20210101
